FAERS Safety Report 5489201-1 (Version None)
Quarter: 2007Q4

REPORT INFORMATION
  Report Type: 
  Country: None (occurrence: None)
  Receive Date: 20071016
  Receipt Date: 20071005
  Transmission Date: 20080405
  Serious: Yes (Hospitalization, Other)
  Sender: FDA-Public Use
  Company Number: 238600K07USA

PATIENT
  Age: 57 Year
  Sex: Female

DRUGS (7)
  1. REBIF [Suspect]
     Indication: MULTIPLE SCLEROSIS
     Dosage: 22 MCG, 3 IN 1 WEEKS, SUBCUTANEOUS
     Route: 058
     Dates: start: 20061013, end: 20071008
  2. SYNTEST (ESTRATEST HS) [Concomitant]
  3. PREMARIN [Concomitant]
  4. PROMETRIUM [Concomitant]
  5. PROVERA [Concomitant]
  6. PROTONIX [Concomitant]
  7. PAXIL [Concomitant]

REACTIONS (5)
  - GAIT DISTURBANCE [None]
  - LYMPHADENOPATHY [None]
  - POST PROCEDURAL COMPLICATION [None]
  - PYREXIA [None]
  - UTERINE CANCER [None]
